FAERS Safety Report 4413755-7 (Version None)
Quarter: 2004Q3

REPORT INFORMATION
  Report Type: 
  Country: None (occurrence: None)
  Receive Date: 20040803
  Receipt Date: 20040726
  Transmission Date: 20050211
  Serious: Yes (Hospitalization)
  Sender: FDA-Public Use
  Company Number: PHEH2004US08059

PATIENT
  Age: 39 Year
  Sex: Female

DRUGS (4)
  1. ZELNORM [Suspect]
     Indication: IRRITABLE BOWEL SYNDROME
     Dosage: 6 MG, BID
     Route: 048
     Dates: start: 20040601
  2. HYDROCODONE [Concomitant]
     Indication: ABDOMINAL PAIN
     Dates: start: 20040501
  3. PROZAC [Concomitant]
     Indication: DEPRESSION
  4. HYCOSAMINE [Concomitant]
     Indication: GASTROINTESTINAL DISORDER
     Dates: start: 20040201

REACTIONS (3)
  - CHEST PAIN [None]
  - DYSPNOEA [None]
  - DYSPNOEA EXERTIONAL [None]
